FAERS Safety Report 6215186-6 (Version None)
Quarter: 2009Q2

REPORT INFORMATION
  Report Type: 
  Country: None (occurrence: None)
  Receive Date: 20090604
  Receipt Date: 20090602
  Transmission Date: 20091009
  Serious: Yes (Death, Hospitalization)
  Sender: FDA-Public Use
  Company Number: US-BRISTOL-MYERS SQUIBB COMPANY-14619720

PATIENT
  Age: 47 Year
  Sex: Female
  Weight: 80 kg

DRUGS (3)
  1. PARAPLATIN [Suspect]
     Dates: start: 20090301, end: 20090301
  2. VEPESID [Suspect]
     Dates: start: 20090301, end: 20090301
  3. RADIATION THERAPY [Concomitant]
     Dosage: 1 DOSAGE FORM = 37.5 GY/15 FRACTIONS[QDX5 DS/WK, X 3WKS]. ROUTE: EXTERNAL BEAM, 2D.
     Dates: start: 20090202, end: 20090224

REACTIONS (4)
  - DEHYDRATION [None]
  - FATIGUE [None]
  - MALIGNANT NEOPLASM PROGRESSION [None]
  - NEUTROPENIA [None]
